FAERS Safety Report 9699326 (Version 2)
Quarter: 2013Q4

REPORT INFORMATION
  Report Type: Spontaneous
  Country: US (occurrence: US)
  Receive Date: 20131120
  Receipt Date: 20131120
  Transmission Date: 20140711
  Serious: No
  Sender: FDA-Public Use
  Company Number: US-GILEAD-2008-0015584

PATIENT
  Sex: Female
  Weight: 147.42 kg

DRUGS (13)
  1. LETAIRIS [Suspect]
     Indication: PULMONARY ARTERIAL HYPERTENSION
     Route: 048
     Dates: start: 20080225
  2. TYLENOL ARTHRITIS [Concomitant]
     Route: 048
  3. FLUTICASONE [Concomitant]
     Route: 045
  4. LISINOPRIL [Concomitant]
     Route: 048
  5. BUMETANIDE [Concomitant]
     Route: 048
  6. LEVOTHYROXINE [Concomitant]
     Route: 048
  7. WARFARIN [Concomitant]
     Route: 048
  8. POTASSIUM [Concomitant]
     Route: 048
  9. DAILY MULTIVITAMIN [Concomitant]
     Route: 048
  10. PROAIR [Concomitant]
     Route: 055
  11. OXYCODONE [Concomitant]
     Route: 048
  12. QVAR [Concomitant]
     Route: 055
  13. CALCIUM [Concomitant]
     Route: 048

REACTIONS (4)
  - Blood pressure decreased [Unknown]
  - Fatigue [Unknown]
  - Somnolence [Unknown]
  - Fluid retention [Unknown]
